FAERS Safety Report 7797566-0 (Version None)
Quarter: 2011Q4

REPORT INFORMATION
  Report Type: 
  Country: None (occurrence: None)
  Receive Date: 20111003
  Receipt Date: 20100726
  Transmission Date: 20120403
  Serious: No
  Sender: FDA-Public Use
  Company Number: AEUSA201000279

PATIENT
  Age: 35 Year
  Sex: Female
  Weight: 90.7194 kg

DRUGS (1)
  1. HYPERRHO [Suspect]
     Indication: PROPHYLAXIS AGAINST RH ISOIMMUNISATION
     Dosage: 1500 IU;1X;IM
     Route: 030
     Dates: start: 20100723, end: 20100723

REACTIONS (1)
  - EXPIRED DRUG ADMINISTERED [None]
